FAERS Safety Report 19456898 (Version 2)
Quarter: 2021Q3

REPORT INFORMATION
  Report Type: Spontaneous
  Country: US (occurrence: US)
  Receive Date: 20210624
  Receipt Date: 20210708
  Transmission Date: 20211014
  Serious: Yes (Other)
  Sender: FDA-Public Use
  Company Number: US-CELLTRION INC.-2021US008196

PATIENT

DRUGS (3)
  1. REMICADE [Suspect]
     Active Substance: INFLIXIMAB
     Indication: CROHN^S DISEASE
     Route: 065
  2. INFLECTRA [Suspect]
     Active Substance: INFLIXIMAB-DYYB
     Indication: CROHN^S DISEASE
     Dosage: UNKNOWN DOSE (100MG) ; BY INFUSION AT THE INFUSION CENTER, Q2WEEKS
     Route: 065
     Dates: start: 202101
  3. MODERNA COVID?19 VACCINE [Concomitant]
     Active Substance: CX-024414
     Dosage: FIRST DOSE
     Dates: start: 20210517

REACTIONS (16)
  - Dyspnoea [Unknown]
  - Infection [Recovering/Resolving]
  - Pain in extremity [Unknown]
  - Product dispensing error [Unknown]
  - Adverse drug reaction [Unknown]
  - Illness [Unknown]
  - Dysgeusia [Unknown]
  - Malaise [Unknown]
  - Immunodeficiency [Unknown]
  - Weight decreased [Unknown]
  - Product substitution issue [Unknown]
  - Off label use [Unknown]
  - Pulmonary thrombosis [Unknown]
  - Ill-defined disorder [Unknown]
  - Night sweats [Unknown]
  - Asthenia [Unknown]

NARRATIVE: CASE EVENT DATE: 202105
